FAERS Safety Report 19099484 (Version 4)
Quarter: 2021Q2

REPORT INFORMATION
  Report Type: Spontaneous
  Country: US (occurrence: US)
  Receive Date: 20210406
  Receipt Date: 20210511
  Transmission Date: 20210717
  Serious: Yes (Death, Hospitalization, Other)
  Sender: FDA-Public Use
  Company Number: US-ASTRAZENECA-2021A262106

PATIENT
  Age: 81 Year
  Sex: Male

DRUGS (1)
  1. BUDESONIDE AND FORMOTEROL AEROSOL [Suspect]
     Active Substance: BUDESONIDE\FORMOTEROL FUMARATE DIHYDRATE
     Dosage: 80/4.5 MCG ,UNKNOWN UNKNOWN
     Route: 055

REACTIONS (12)
  - Respiration abnormal [Unknown]
  - Device delivery system issue [Unknown]
  - Candida infection [Recovered/Resolved]
  - Wrong technique in device usage process [Unknown]
  - Device issue [Unknown]
  - Arrhythmia [Unknown]
  - Confusional state [Unknown]
  - Incorrect dose administered by device [Unknown]
  - Cardiac failure congestive [Fatal]
  - Myocardial infarction [Fatal]
  - Product prescribing issue [Unknown]
  - Device ineffective [Unknown]

NARRATIVE: CASE EVENT DATE: 2019
